FAERS Safety Report 8923814 (Version 1)
Quarter: 2012Q4

REPORT INFORMATION
  Report Type: 
  Country: US (occurrence: US)
  Receive Date: 20121126
  Receipt Date: 20121126
  Transmission Date: 20130627
  Serious: Yes (Other)
  Sender: FDA-Public Use
  Company Number: US-BAYER-2012-122004

PATIENT
  Age: 39 Year
  Sex: Female
  Weight: 76.19 kg

DRUGS (3)
  1. YASMIN [Suspect]
     Indication: POLYCYSTIC OVARIES
  2. YAZ [Suspect]
  3. VICODIN [Concomitant]
     Dosage: UNK UNK, PRN

REACTIONS (4)
  - Pulmonary embolism [None]
  - Pulmonary infarction [Recovered/Resolved]
  - Pulmonary hypertension [None]
  - Off label use [None]
